FAERS Safety Report 8815341 (Version 2)
Quarter: 2013Q1

REPORT INFORMATION
  Report Type: Report from Study
  Country: US (occurrence: US)
  Receive Date: 20120928
  Receipt Date: 20130116
  Transmission Date: 20140127
  Serious: Yes (Life-Threatening, Hospitalization, Other)
  Sender: FDA-Public Use
  Company Number: US-ACTELION-A-US2012-71748

PATIENT
  Age: 65 Year
  Sex: Female

DRUGS (2)
  1. TRACLEER [Suspect]
     Indication: PULMONARY ARTERIAL HYPERTENSION
     Dosage: UNK
     Route: 048
  2. COUMADIN [Concomitant]

REACTIONS (7)
  - Diabetes mellitus [Recovering/Resolving]
  - Renal failure chronic [Recovering/Resolving]
  - Dialysis [Recovering/Resolving]
  - Sepsis [Recovering/Resolving]
  - Device related infection [Recovering/Resolving]
  - Chest pain [Recovering/Resolving]
  - Panic attack [Recovering/Resolving]
